FAERS Safety Report 6894641-X (Version None)
Quarter: 2010Q3

REPORT INFORMATION
  Report Type: 
  Country: None (occurrence: None)
  Receive Date: 20100802
  Receipt Date: 20100722
  Transmission Date: 20110219
  Serious: Yes (Disabling, Other)
  Sender: FDA-Public Use
  Company Number: GB-ASTRAZENECA-2010SE34324

PATIENT
  Age: 40 Year
  Sex: Male

DRUGS (3)
  1. ACCOLATE [Suspect]
     Indication: ASTHMA
     Route: 048
  2. QVAR 40 [Concomitant]
  3. SALBUTAMOL [Concomitant]

REACTIONS (1)
  - OSTEOPOROSIS [None]
